FAERS Safety Report 8381061-4 (Version None)
Quarter: 2012Q2

REPORT INFORMATION
  Report Type: 
  Country: None (occurrence: None)
  Receive Date: 20120523
  Receipt Date: 20120518
  Transmission Date: 20120825
  Serious: Yes (Hospitalization)
  Sender: FDA-Public Use
  Company Number: VE-PFIZER INC-2012115363

PATIENT
  Age: 62 Year
  Sex: Female

DRUGS (4)
  1. LIPITOR [Suspect]
     Indication: HYPERCHOLESTEROLAEMIA
     Dosage: 80 MG, 1X/DAY
     Route: 048
  2. BISOPROLOL FUMARATE [Concomitant]
     Indication: HYPERTENSION
     Dosage: 5 MG, 1X/DAY
     Route: 048
  3. ASPIRIN [Concomitant]
     Indication: CARDIAC DISCOMFORT
     Dosage: 81 MG, 1X/DAY
     Route: 048
  4. BENICAR [Concomitant]
     Indication: HYPERTENSION
     Dosage: 80/12.5 MG 1X/DAY
     Route: 048

REACTIONS (1)
  - ARTHROPATHY [None]
